FAERS Safety Report 25537480 (Version 3)
Quarter: 2025Q3

REPORT INFORMATION
  Report Type: Spontaneous
  Country: US (occurrence: US)
  Receive Date: 20250710
  Receipt Date: 20250918
  Transmission Date: 20251020
  Serious: Yes (Hospitalization)
  Sender: BRISTOL-MYERS SQUIBB COMPANY
  Company Number: US-BRISTOL-MYERS SQUIBB COMPANY-2025-097044

PATIENT
  Age: 81 Year
  Sex: Female
  Weight: 78.47 kg

DRUGS (3)
  1. POMALYST [Suspect]
     Active Substance: POMALIDOMIDE
     Indication: Plasma cell myeloma
  2. POMALYST [Suspect]
     Active Substance: POMALIDOMIDE
     Dosage: ONCE DAILY FOR 1 WEEK ON, THEN 1 WEEK OFF
  3. POMALYST [Suspect]
     Active Substance: POMALIDOMIDE

REACTIONS (4)
  - Nausea [Recovering/Resolving]
  - Tremor [Not Recovered/Not Resolved]
  - Asthenia [Not Recovered/Not Resolved]
  - Bronchitis [Unknown]
